FAERS Safety Report 22868786 (Version 2)
Quarter: 2023Q4

REPORT INFORMATION
  Report Type: Spontaneous
  Country: IT (occurrence: IT)
  Receive Date: 20230825
  Receipt Date: 20231006
  Transmission Date: 20240110
  Serious: Yes (Hospitalization)
  Sender: FDA-Public Use
  Company Number: None

PATIENT
  Age: 72 Year
  Sex: Female
  Weight: 83 kg

DRUGS (1)
  1. ULTRAVIST [Suspect]
     Active Substance: IOPROMIDE
     Indication: Computerised tomogram
     Dosage: 110 ML
     Route: 042
     Dates: start: 20230613, end: 20230613

REACTIONS (5)
  - Blood pressure increased [Unknown]
  - Rash [Unknown]
  - Chest pain [Unknown]
  - Throat tightness [Unknown]
  - Peripheral vein stenosis [Unknown]

NARRATIVE: CASE EVENT DATE: 20230613
